FAERS Safety Report 7819642-6 (Version None)
Quarter: 2011Q4

REPORT INFORMATION
  Report Type: 
  Country: None (occurrence: None)
  Receive Date: 20111013
  Receipt Date: 20110930
  Transmission Date: 20120403
  Serious: Yes (Hospitalization)
  Sender: FDA-Public Use
  Company Number: 1000023477

PATIENT
  Age: 85 Year
  Sex: Female

DRUGS (5)
  1. FUROSEMIDE [Suspect]
     Indication: OEDEMA PERIPHERAL
     Dosage: ORAL
     Route: 048
     Dates: start: 20110905
  2. MEMANTINE HYDROCHLORIDE [Suspect]
     Indication: DEMENTIA ALZHEIMER'S TYPE
     Dosage: 20 MG (20 MG,2 IN 1 D),ORAL
     Route: 048
     Dates: end: 20110810
  3. EFFEXOR [Suspect]
     Indication: DEPRESSION
     Dosage: 37.5 MG (37.5 MG,1 IN 1 D),ORAL
     Route: 048
     Dates: start: 20110514, end: 20110810
  4. FUROSEMIDE [Suspect]
     Indication: OEDEMA PERIPHERAL
     Dosage: 160 MG (160 MG,1 IN 1 D),ORAL
     Route: 048
     Dates: start: 20110715, end: 20110810
  5. PERINDOPRIL ERBUMINE [Suspect]
     Indication: HYPERTENSION
     Dosage: 2 MG (2 MG,1 IN 1 D),ORAL
     Route: 048
     Dates: start: 20110801, end: 20110810

REACTIONS (4)
  - HYPERGLYCAEMIA [None]
  - PANCREATITIS ACUTE [None]
  - VENTRICULAR EXTRASYSTOLES [None]
  - BUNDLE BRANCH BLOCK RIGHT [None]
